FAERS Safety Report 5960065-2 (Version None)
Quarter: 2008Q4

REPORT INFORMATION
  Report Type: 
  Country: None (occurrence: None)
  Receive Date: 20081119
  Receipt Date: 20081119
  Transmission Date: 20090506
  Serious: Yes (Life-Threatening)
  Sender: FDA-Public Use
  Company Number: None

PATIENT
  Age: 57 Year
  Sex: Male
  Weight: 97 kg

DRUGS (13)
  1. HYDROMORPHONE HCL [Suspect]
     Indication: PAIN
     Dosage: 0/0.2/10 PCA
     Dates: start: 20080923, end: 20080924
  2. BACTRIM [Concomitant]
  3. VALGANCICLOVIR [Concomitant]
  4. TAMSULOSIN HCL [Concomitant]
  5. TACROLIMUS [Concomitant]
  6. RANITIDINE [Concomitant]
  7. MYCOPHENOLATE MOFETIL [Concomitant]
  8. INSULIN ASPART [Concomitant]
  9. M.V.I. [Concomitant]
  10. CEFAZOLIN [Concomitant]
  11. CARVEDILOL [Concomitant]
  12. ATORVASTATIN CALCIUM [Concomitant]
  13. ASPIRIN [Concomitant]

REACTIONS (4)
  - APNOEA [None]
  - OXYGEN SATURATION DECREASED [None]
  - RESPIRATORY RATE DECREASED [None]
  - SOMNOLENCE [None]
